FAERS Safety Report 7452941-9 (Version None)
Quarter: 2011Q2

REPORT INFORMATION
  Report Type: 
  Country: None (occurrence: None)
  Receive Date: 20110502
  Receipt Date: 20110428
  Transmission Date: 20111010
  Serious: Yes (Death, Other)
  Sender: FDA-Public Use
  Company Number: US-PFIZER INC-2011091896

PATIENT
  Sex: Male

DRUGS (2)
  1. AMLODIPINE BESILATE [Suspect]
  2. NORVASC [Suspect]

REACTIONS (2)
  - DEATH [None]
  - HEPATIC NEOPLASM MALIGNANT [None]
